FAERS Safety Report 24686935 (Version 1)
Quarter: 2024Q4

REPORT INFORMATION
  Report Type: Spontaneous
  Country: US (occurrence: US)
  Receive Date: 20241202
  Receipt Date: 20241202
  Transmission Date: 20250115
  Serious: No
  Sender: SANDOZ
  Company Number: US-SANDOZ-SDZ2024US098924

PATIENT

DRUGS (2)
  1. METFORMIN [Suspect]
     Active Substance: METFORMIN HYDROCHLORIDE
     Indication: Hidradenitis
     Dosage: 500 MG
     Route: 048
  2. TOPIRAMATE [Suspect]
     Active Substance: TOPIRAMATE
     Indication: Hidradenitis
     Dosage: 50 MG
     Route: 048

REACTIONS (3)
  - Hidradenitis [Recovering/Resolving]
  - Condition aggravated [Recovering/Resolving]
  - Quality of life decreased [Recovering/Resolving]
